FAERS Safety Report 11511282 (Version 1)
Quarter: 2015Q3

REPORT INFORMATION
  Report Type: Spontaneous
  Country: US (occurrence: US)
  Receive Date: 20150915
  Receipt Date: 20150915
  Transmission Date: 20151125
  Serious: Yes (Hospitalization)
  Sender: FDA-Public Use
  Company Number: US-PFIZER INC-2015295227

PATIENT
  Age: 63 Year
  Sex: Female

DRUGS (1)
  1. SUTENT [Suspect]
     Active Substance: SUNITINIB MALATE
     Dosage: STRENGTH: 50, 1 CAPSULE EVERY DAY ON 4 WEEKS/OFF 2
     Route: 048
     Dates: start: 20150715

REACTIONS (2)
  - Dehydration [Unknown]
  - Gastroenteritis norovirus [Unknown]

NARRATIVE: CASE EVENT DATE: 20150820
